FAERS Safety Report 13038709 (Version 1)
Quarter: 2016Q4

REPORT INFORMATION
  Report Type: Spontaneous
  Country: US (occurrence: US)
  Receive Date: 20161219
  Receipt Date: 20161219
  Transmission Date: 20170207
  Serious: No
  Sender: FDA-Public Use
  Company Number: US-ASTRAZENECA-2016SF24203

PATIENT
  Sex: Female

DRUGS (9)
  1. IPRATROPIUM [Concomitant]
     Active Substance: IPRATROPIUM
     Dosage: 0.06% UNKNOWN
  2. SILVER SULFADIANZINE [Concomitant]
     Dosage: 1.0% UNKNOWN
  3. CIPROFLOXIN HCL [Concomitant]
     Active Substance: CIPROFLOXACIN HYDROCHLORIDE
     Dosage: 500.0MG UNKNOWN
  4. ACETYLCYSTEINE. [Concomitant]
     Active Substance: ACETYLCYSTEINE
     Dosage: 6.0G UNKNOWN
  5. SYMBICORT [Suspect]
     Active Substance: BUDESONIDE\FORMOTEROL FUMARATE DIHYDRATE
     Dosage: 160-4.5MCG
     Route: 055
  6. KEFLEX [Concomitant]
     Active Substance: CEPHALEXIN
     Dosage: 500.0MG UNKNOWN
  7. SPIRIVA RESPIMAT [Concomitant]
     Active Substance: TIOTROPIUM BROMIDE
     Dosage: 2.5UG UNKNOWN
     Route: 055
  8. BRILINTA [Suspect]
     Active Substance: TICAGRELOR
     Route: 048
     Dates: start: 20161108, end: 20161116
  9. PANTOPRAZOLE SODIUM. [Concomitant]
     Active Substance: PANTOPRAZOLE SODIUM
     Dosage: 40.0MG UNKNOWN

REACTIONS (3)
  - Rash [Unknown]
  - Dyspnoea [Unknown]
  - Urticaria [Unknown]
